FAERS Safety Report 18909769 (Version 1)
Quarter: 2021Q1

REPORT INFORMATION
  Report Type: Spontaneous
  Country: US (occurrence: US)
  Receive Date: 20210218
  Receipt Date: 20210218
  Transmission Date: 20210420
  Serious: No
  Sender: FDA-Public Use
  Company Number: None

PATIENT
  Age: 75 Year
  Sex: Female
  Weight: 52.6 kg

DRUGS (10)
  1. CAPECITABINE. [Suspect]
     Active Substance: CAPECITABINE
     Indication: BREAST CANCER
     Route: 048
     Dates: start: 20210125
  2. FUROSEMIDE. [Concomitant]
     Active Substance: FUROSEMIDE
  3. PROCHLORPERAZINE MALEATE. [Concomitant]
     Active Substance: PROCHLORPERAZINE MALEATE
  4. VITAMIN D3 COMPLETE [Concomitant]
  5. CORAL CALCIUM [Concomitant]
     Active Substance: DIETARY SUPPLEMENT
  6. PHENOBARBITAL. [Concomitant]
     Active Substance: PHENOBARBITAL
  7. VITAMIN C [Concomitant]
     Active Substance: ASCORBIC ACID
  8. DILANTIN [Concomitant]
     Active Substance: PHENYTOIN
  9. EXEMESTANE. [Concomitant]
     Active Substance: EXEMESTANE
  10. MULTIVITAMINS [Concomitant]
     Active Substance: VITAMINS

REACTIONS (1)
  - Palmar-plantar erythrodysaesthesia syndrome [None]

NARRATIVE: CASE EVENT DATE: 20210211
